FAERS Safety Report 24983409 (Version 1)
Quarter: 2025Q1

REPORT INFORMATION
  Report Type: Other
  Country: CN (occurrence: CN)
  Receive Date: 20250219
  Receipt Date: 20250219
  Transmission Date: 20250409
  Serious: Yes (Hospitalization, Other)
  Sender: QILU PHARMACEUTICAL
  Company Number: CN-QILU PHARMACEUTICAL CO.LTD.-QLU-000040-2025

PATIENT
  Age: 16 Year
  Sex: Female
  Weight: 54 kg

DRUGS (6)
  1. CISPLATIN [Suspect]
     Active Substance: CISPLATIN
     Indication: Bone sarcoma
     Dosage: 50 MG ONCE A DAY
     Route: 041
     Dates: start: 20241213, end: 20241216
  2. PIRARUBICIN HYDROCHLORIDE [Suspect]
     Active Substance: PIRARUBICIN HYDROCHLORIDE
     Indication: Bone sarcoma
     Dosage: 60 MG ONCE A DAY
     Route: 041
     Dates: start: 20241213, end: 20241213
  3. METHOTREXATE [Suspect]
     Active Substance: METHOTREXATE
     Indication: Bone sarcoma
     Dosage: 14 G ONCE A DAY
     Route: 041
     Dates: start: 20241219, end: 20241219
  4. Glucose solution (GS) [Concomitant]
     Route: 065
  5. Normal Saline (NS) [Concomitant]
     Route: 065
     Dates: start: 20241213
  6. Normal Saline (NS) [Concomitant]
     Route: 065
     Dates: start: 20241219

REACTIONS (3)
  - Mouth ulceration [Recovered/Resolved]
  - Myelosuppression [Recovered/Resolved]
  - Off label use [Recovered/Resolved]

NARRATIVE: CASE EVENT DATE: 20241213
